FAERS Safety Report 19221022 (Version 2)
Quarter: 2021Q3

REPORT INFORMATION
  Report Type: Spontaneous
  Country: BR (occurrence: BR)
  Receive Date: 20210505
  Receipt Date: 20210729
  Transmission Date: 20211014
  Serious: Yes (Other)
  Sender: FDA-Public Use
  Company Number: BR-TAKEDA-2021TUS028073

PATIENT
  Age: 39 Year
  Sex: Female
  Weight: 76 kg

DRUGS (5)
  1. ROSUVASTATIN. [Concomitant]
     Active Substance: ROSUVASTATIN
     Indication: BLOOD CHOLESTEROL ABNORMAL
     Dosage: 10 MILLIGRAM, QD
     Route: 065
  2. DEXILANT [Suspect]
     Active Substance: DEXLANSOPRAZOLE
     Indication: OESOPHAGITIS
     Dosage: 30 MILLIGRAM, QD
     Route: 048
     Dates: start: 202104, end: 202104
  3. PANTOPRAZOLE [Concomitant]
     Active Substance: PANTOPRAZOLE
     Indication: OESOPHAGITIS
     Dosage: 20 MILLIGRAM, QD
     Route: 065
  4. AMITRIPTYLINE [Concomitant]
     Active Substance: AMITRIPTYLINE
     Indication: TRIGEMINAL NEURALGIA
     Dosage: 25 MILLIGRAM, BID
     Route: 065
  5. CARBAMAZEPINE. [Concomitant]
     Active Substance: CARBAMAZEPINE
     Indication: TRIGEMINAL NEURALGIA
     Dosage: 200 MILLIGRAM, BID
     Route: 065

REACTIONS (13)
  - Condition aggravated [Unknown]
  - Burning sensation [Unknown]
  - Abdominal pain [Unknown]
  - Post-acute COVID-19 syndrome [Unknown]
  - Trigeminal neuralgia [Unknown]
  - Off label use [Recovered/Resolved]
  - Somnolence [Unknown]
  - Dizziness [Unknown]
  - Arthralgia [Unknown]
  - Sinusitis [Unknown]
  - Paraesthesia [Unknown]
  - Oropharyngeal pain [Unknown]
  - Headache [Unknown]

NARRATIVE: CASE EVENT DATE: 202104
